FAERS Safety Report 16998240 (Version 1)
Quarter: 2019Q4

REPORT INFORMATION
  Report Type: Report from Study
  Country: CA (occurrence: CA)
  Receive Date: 20191106
  Receipt Date: 20191106
  Transmission Date: 20200122
  Serious: Yes (Other)
  Sender: FDA-Public Use
  Company Number: CA-GLAXOSMITHKLINE-CA2019AMR199139

PATIENT
  Sex: Female

DRUGS (1)
  1. MEPOLIZUMAB [Suspect]
     Active Substance: MEPOLIZUMAB
     Indication: ASTHMA
     Dosage: 100 MG, Z (MONTHS)
     Route: 042
     Dates: start: 20190709

REACTIONS (5)
  - Loss of consciousness [Unknown]
  - Head injury [Unknown]
  - Face injury [Unknown]
  - Chest injury [Unknown]
  - Sleep disorder due to a general medical condition [Unknown]
